FAERS Safety Report 19736375 (Version 2)
Quarter: 2021Q4

REPORT INFORMATION
  Report Type: Report from Study
  Country: CA (occurrence: CA)
  Receive Date: 20210824
  Receipt Date: 20211013
  Transmission Date: 20220303
  Serious: Yes (Other)
  Sender: FDA-Public Use
  Company Number: 2021A381402

PATIENT
  Sex: Female

DRUGS (3)
  1. CALQUENCE [Suspect]
     Active Substance: ACALABRUTINIB
     Indication: Chronic lymphocytic leukaemia
     Route: 048
  2. CALQUENCE [Suspect]
     Active Substance: ACALABRUTINIB
     Indication: Chronic lymphocytic leukaemia
     Route: 048
     Dates: start: 20210301
  3. IMBRUVICA [Concomitant]
     Active Substance: IBRUTINIB

REACTIONS (4)
  - Toxicity to various agents [Unknown]
  - Urinary tract infection [Unknown]
  - Anaemia macrocytic [Not Recovered/Not Resolved]
  - Haemolysis [Unknown]
